FAERS Safety Report 14391810 (Version 2)
Quarter: 2018Q3

REPORT INFORMATION
  Report Type: Spontaneous
  Country: GB (occurrence: GB)
  Receive Date: 20180116
  Receipt Date: 20180824
  Transmission Date: 20181010
  Serious: Yes (Disabling, Other)
  Sender: FDA-Public Use
  Company Number: GB-TEVA-2018-GB-844900

PATIENT
  Age: 80 Year
  Sex: Female
  Weight: 73.5 kg

DRUGS (9)
  1. TRIMETHOPRIM. [Concomitant]
     Active Substance: TRIMETHOPRIM
     Dates: start: 20170830
  2. OMEPRAZOLE. [Concomitant]
     Active Substance: OMEPRAZOLE
     Dates: start: 20171121
  3. ALENDRONIC ACID [Suspect]
     Active Substance: ALENDRONIC ACID
     Route: 065
     Dates: start: 20171026, end: 20171130
  4. CALFOVIT D3 [Concomitant]
     Dates: start: 20171025
  5. LISINOPRIL. [Concomitant]
     Active Substance: LISINOPRIL
     Dates: start: 20171121
  6. ATENOLOL. [Concomitant]
     Active Substance: ATENOLOL
     Dates: start: 20171121
  7. LACTULOSE. [Concomitant]
     Active Substance: LACTULOSE
     Dosage: 3.1?3.7G/5ML
     Route: 048
     Dates: start: 20170901
  8. ADCAL?D3 [Concomitant]
     Active Substance: CALCIUM CARBONATE\CHOLECALCIFEROL
     Dates: start: 20171025
  9. KETOCONAZOLE. [Concomitant]
     Active Substance: KETOCONAZOLE
     Dates: start: 20171115

REACTIONS (3)
  - Visual acuity reduced [Unknown]
  - Photopsia [Unknown]
  - Photophobia [Unknown]

NARRATIVE: CASE EVENT DATE: 20171026
